FAERS Safety Report 8460583-1 (Version None)
Quarter: 2012Q2

REPORT INFORMATION
  Report Type: 
  Country: None (occurrence: None)
  Receive Date: 20120622
  Receipt Date: 20120418
  Transmission Date: 20120825
  Serious: No
  Sender: FDA-Public Use
  Company Number: US-ASTRAZENECA-2012SE25406

PATIENT
  Age: 85 Year
  Sex: Female

DRUGS (2)
  1. BRILINTA [Suspect]
     Route: 048
  2. BRILINTA [Suspect]
     Indication: ACUTE MYOCARDIAL INFARCTION
     Route: 048

REACTIONS (3)
  - COUGH [None]
  - DRUG INTOLERANCE [None]
  - DYSPNOEA [None]
